FAERS Safety Report 6675407-2 (Version None)
Quarter: 2010Q2

REPORT INFORMATION
  Report Type: 
  Country: None (occurrence: None)
  Receive Date: 20100409
  Receipt Date: 20100331
  Transmission Date: 20101027
  Serious: Yes (Other)
  Sender: FDA-Public Use
  Company Number: US-BAYER-201013753BCC

PATIENT
  Age: 66 Year
  Sex: Male

DRUGS (15)
  1. ASPIRIN [Suspect]
     Indication: DRUG USE FOR UNKNOWN INDICATION
     Dosage: TOTAL DAILY DOSE: 325 MG  UNIT DOSE: 325 MG
     Route: 065
     Dates: end: 20080101
  2. PLAVIX [Suspect]
     Indication: STENT PLACEMENT
     Dosage: TOTAL DAILY DOSE: 75 MG  UNIT DOSE: 75 MG
     Route: 048
     Dates: start: 20010601
  3. LIPITOR [Concomitant]
     Route: 065
  4. NIACIN [Concomitant]
     Route: 065
  5. AZOR [Concomitant]
     Route: 065
  6. WELCHOL [Concomitant]
     Route: 065
  7. CYMBALTA [Concomitant]
     Route: 065
  8. ZYPREXA [Concomitant]
     Route: 065
  9. ANDROGEL [Concomitant]
     Route: 065
  10. FOLIC ACID [Concomitant]
     Route: 065
  11. VITAMIN D [Concomitant]
     Route: 065
  12. CALTRATE [Concomitant]
     Route: 065
  13. LIPOFLAVONOID [Concomitant]
     Route: 065
  14. COUMADIN [Concomitant]
     Route: 065
     Dates: end: 20080101
  15. ASPIRIN [Concomitant]
     Route: 065
     Dates: start: 20080101

REACTIONS (4)
  - CEREBRAL HAEMORRHAGE [None]
  - FALL [None]
  - PULMONARY EMBOLISM [None]
  - TRANSIENT ISCHAEMIC ATTACK [None]
